FAERS Safety Report 10615137 (Version 1)
Quarter: 2014Q4

REPORT INFORMATION
  Report Type: Spontaneous
  Country: US (occurrence: None)
  Receive Date: 20141125
  Receipt Date: 20141125
  Transmission Date: 20150529
  Serious: No
  Sender: FDA-Public Use
  Company Number: None

PATIENT
  Age: 73 Year
  Sex: Female
  Weight: 77.11 kg

DRUGS (9)
  1. LUTEIN [Concomitant]
     Active Substance: LUTEIN
  2. VITAMINS C [Concomitant]
  3. EFA^S [Concomitant]
  4. BRINTELLIX [Suspect]
     Active Substance: VORTIOXETINE HYDROBROMIDE
     Indication: FATIGUE
     Dosage: 10 MGM/TAB, 1/2 TAB/D, 1/D, ORAL
     Route: 048
     Dates: start: 20140803, end: 20141001
  5. VITAMINS B [Concomitant]
  6. VITAMINS D [Concomitant]
  7. BRINTELLIX [Suspect]
     Active Substance: VORTIOXETINE HYDROBROMIDE
     Indication: ANHEDONIA
     Dosage: 10 MGM/TAB, 1/2 TAB/D, 1/D, ORAL
     Route: 048
     Dates: start: 20140803, end: 20141001
  8. ZNP BAR [Concomitant]
     Active Substance: PYRITHIONE ZINC
  9. E [Concomitant]

REACTIONS (1)
  - Ventricular extrasystoles [None]

NARRATIVE: CASE EVENT DATE: 201410
